FAERS Safety Report 5223563-5 (Version None)
Quarter: 2007Q1

REPORT INFORMATION
  Report Type: 
  Country: None (occurrence: None)
  Receive Date: 20070125
  Receipt Date: 20070108
  Transmission Date: 20070707
  Serious: Yes (Hospitalization, Other)
  Sender: FDA-Public Use
  Company Number: WSDF_00601

PATIENT
  Age: 4 Year
  Sex: Male
  Weight: 15.6 kg

DRUGS (1)
  1. WINRHO SDF [Suspect]
     Indication: IDIOPATHIC THROMBOCYTOPENIC PURPURA
     Dosage: 900 MCG ONCE IV
     Route: 042
     Dates: start: 20070102, end: 20070102

REACTIONS (4)
  - ANAEMIA [None]
  - DISSEMINATED INTRAVASCULAR COAGULATION [None]
  - HAEMOGLOBINURIA [None]
  - RENAL FAILURE [None]
